FAERS Safety Report 20436682 (Version 3)
Quarter: 2022Q3

REPORT INFORMATION
  Report Type: Report from Study
  Country: FR (occurrence: FR)
  Receive Date: 20220207
  Receipt Date: 20220719
  Transmission Date: 20221027
  Serious: Yes (Life-Threatening, Hospitalization, Other)
  Sender: FDA-Public Use
  Company Number: FR-Intas Spain-000449

PATIENT
  Age: 62 Year
  Sex: Male
  Weight: 112 kg

DRUGS (13)
  1. APIXABAN [Interacting]
     Active Substance: APIXABAN
     Indication: Cerebrovascular accident prophylaxis
     Dosage: 230 MILLIGRAM, (PRESUMED INGESTED DOSE 23 X 10 MG(230 MG)
     Route: 048
  2. BISOPROLOL [Interacting]
     Active Substance: BISOPROLOL
     Indication: Product used for unknown indication
     Route: 065
  3. BISOPROLOL [Interacting]
     Active Substance: BISOPROLOL
     Route: 048
  4. ACETAMINOPHEN [Interacting]
     Active Substance: ACETAMINOPHEN
     Indication: Product used for unknown indication
     Route: 065
  5. CLOMIPRAMINE [Interacting]
     Active Substance: CLOMIPRAMINE
     Indication: Product used for unknown indication
     Route: 048
  6. HYDROCHLOROTHIAZIDE [Interacting]
     Active Substance: HYDROCHLOROTHIAZIDE
     Indication: Product used for unknown indication
     Route: 065
  7. HYDROCHLOROTHIAZIDE [Interacting]
     Active Substance: HYDROCHLOROTHIAZIDE
     Route: 048
  8. HYDROCHLOROTHIAZIDE [Interacting]
     Active Substance: HYDROCHLOROTHIAZIDE
     Route: 048
  9. AMLODIPINE [Interacting]
     Active Substance: AMLODIPINE BESYLATE
     Indication: Product used for unknown indication
     Route: 065
  10. AMLODIPINE [Interacting]
     Active Substance: AMLODIPINE BESYLATE
     Route: 048
  11. AMLODIPINE [Interacting]
     Active Substance: AMLODIPINE BESYLATE
     Route: 048
  12. ATORVASTATIN [Interacting]
     Active Substance: ATORVASTATIN
     Indication: Product used for unknown indication
     Route: 065
  13. POTASSIUM [Interacting]
     Active Substance: POTASSIUM
     Indication: Product used for unknown indication
     Route: 048

REACTIONS (4)
  - Overdose [Unknown]
  - Shock [Unknown]
  - Suicide attempt [Unknown]
  - Drug interaction [Unknown]
